FAERS Safety Report 9104135 (Version 3)
Quarter: 2013Q2

REPORT INFORMATION
  Report Type: Report from Study
  Country: CL (occurrence: CL)
  Receive Date: 20130219
  Receipt Date: 20130423
  Transmission Date: 20140414
  Serious: Yes (Other)
  Sender: FDA-Public Use
  Company Number: PHHY2013CL015234

PATIENT
  Age: 65 Year
  Sex: Female
  Weight: 74 kg

DRUGS (2)
  1. ACLASTA [Suspect]
     Indication: OSTEOPOROSIS
     Dosage: UNK UKN, YEARLY
     Route: 042
     Dates: start: 201202
  2. CORTISOL [Concomitant]
     Indication: ADRENAL GLAND OPERATION
     Dosage: UNK UKN, UNK
     Route: 048

REACTIONS (6)
  - Osteonecrosis of jaw [Not Recovered/Not Resolved]
  - Fracture [Not Recovered/Not Resolved]
  - Pain in jaw [Not Recovered/Not Resolved]
  - Gingival cyst [Not Recovered/Not Resolved]
  - Loose tooth [Unknown]
  - Tooth disorder [Unknown]
